FAERS Safety Report 6970149-8 (Version None)
Quarter: 2010Q3

REPORT INFORMATION
  Report Type: 
  Country: None (occurrence: None)
  Receive Date: 20100903
  Receipt Date: 20100827
  Transmission Date: 20110219
  Serious: Yes (Death, Life-Threatening, Hospitalization)
  Sender: FDA-Public Use
  Company Number: 2010JP003948

PATIENT
  Age: 72 Year
  Sex: Female
  Weight: 57.5 kg

DRUGS (37)
  1. TACROLIMUS [Suspect]
     Indication: INTERSTITIAL LUNG DISEASE
     Dosage: 0.5 MG, BID, ORAL; 2 MG, BID, ORAL; 1.5 MG, BID, ORAL; 2.5 MG, /D, ORAL
     Route: 048
     Dates: start: 20090925, end: 20090928
  2. TACROLIMUS [Suspect]
     Indication: INTERSTITIAL LUNG DISEASE
     Dosage: 0.5 MG, BID, ORAL; 2 MG, BID, ORAL; 1.5 MG, BID, ORAL; 2.5 MG, /D, ORAL
     Route: 048
     Dates: start: 20090929, end: 20100113
  3. TACROLIMUS [Suspect]
     Indication: INTERSTITIAL LUNG DISEASE
     Dosage: 0.5 MG, BID, ORAL; 2 MG, BID, ORAL; 1.5 MG, BID, ORAL; 2.5 MG, /D, ORAL
     Route: 048
     Dates: start: 20100114, end: 20100510
  4. TACROLIMUS [Suspect]
     Indication: INTERSTITIAL LUNG DISEASE
     Dosage: 0.5 MG, BID, ORAL; 2 MG, BID, ORAL; 1.5 MG, BID, ORAL; 2.5 MG, /D, ORAL
     Route: 048
     Dates: start: 20100511, end: 20100704
  5. PREDNISOLONE TAB [Concomitant]
  6. PREDOHAN (PREDNISOLONE) TABLET [Concomitant]
  7. LASIX [Concomitant]
  8. FUNGIZONE [Concomitant]
  9. LOPERANIL (LOPERAMIDE HYDROCHLORIDE) CAPSULE [Concomitant]
  10. NOVORAPID (INSULIN ASPART) INJECTION [Concomitant]
  11. LIPITOR [Concomitant]
  12. TAPIZOL (LANSOPRAZOLE) CAPSULE [Concomitant]
  13. AMLODIPINE (AMLODIPINE BESILATE) TABLET [Concomitant]
  14. BAKTAR (SULFAMETHOXAZOLE, TRIMETHOPRIM) TABLET [Concomitant]
  15. TANATRIL (IMIDAPRIL HYDROCHLORIDE) TABLET [Concomitant]
  16. PLATIBIT (ALFACALCIDOL) CAPSULE [Concomitant]
  17. PLETAL [Concomitant]
  18. URSO (URSODEOXYCHOLIC ACID) TABLET [Concomitant]
  19. BIO THREE (CLOSTRIDIUM BUTYRICUM, LACTOBACILLUS ACIDOPHILUS, SACCHAROM [Concomitant]
  20. PLATELETS (PLATELETS) INJECTION [Concomitant]
  21. STEROID FORMULATION UNKNOWN [Concomitant]
  22. ALBUMIN (ALBUMIN) INJECTION [Concomitant]
  23. LANSOPRAZOLE (LANSOPRAZOLE) ORODISPERSIBLE CR TABLET [Concomitant]
  24. FULCALIQ (AMINO ACIDS NOS, CARBOHYDRATES NOS, ELECTROLYTES NOS, VITAMI [Concomitant]
  25. MEDLENIK (COPPER SULFATE, FERRIC CHLORIDE, MANGANESE CHLORIDE, POTASSI [Concomitant]
  26. ELEMENMIC (COPPER SULFATE, FERRIC CHLORIDE, MANGANESE CHLORIDE, POTASS [Concomitant]
  27. HUMULIN R [Concomitant]
  28. FUNGIZONE (AMPHOTERICIN B) MOUTH WASH [Concomitant]
  29. NEGMIN (POVIDONE-IODINE) MOUTH WASH [Concomitant]
  30. LASIX [Concomitant]
  31. SOLDACTONE (POTASSIUM CANRENOATE) INJECTION [Concomitant]
  32. GANCICLOVIR [Concomitant]
  33. PREDONINE (PREDNISOLONE SODIUM SUCCINATE) INJECTION [Concomitant]
  34. DIAMOX (ACETAZOLAMIDE SODIUM) INJECTION [Concomitant]
  35. OMEPRAL (OMEPRAZOLE SODIUM) INJECTION [Concomitant]
  36. URSO (URSODEOXYCHOLIC ACID) GRANULE [Concomitant]
  37. LACTULOSE [Concomitant]

REACTIONS (23)
  - ACUTE RESPIRATORY DISTRESS SYNDROME [None]
  - ACUTE RESPIRATORY FAILURE [None]
  - ASCITES [None]
  - AUTOIMMUNE THROMBOCYTOPENIA [None]
  - CARDIO-RESPIRATORY ARREST [None]
  - CONDITION AGGRAVATED [None]
  - CYTOMEGALOVIRUS TEST POSITIVE [None]
  - DIARRHOEA [None]
  - DRUG LEVEL INCREASED [None]
  - HEPATIC CIRRHOSIS [None]
  - HEPATIC ENCEPHALOPATHY [None]
  - HYPOPHAGIA [None]
  - HYPOPROTEINAEMIA [None]
  - INTERSTITIAL LUNG DISEASE [None]
  - METABOLIC ACIDOSIS [None]
  - MULTI-ORGAN FAILURE [None]
  - PANCREATITIS HAEMORRHAGIC [None]
  - PLEURAL EFFUSION [None]
  - PNEUMONIA [None]
  - PORTAL HYPERTENSION [None]
  - PULMONARY CONGESTION [None]
  - RENAL DISORDER [None]
  - SOMNOLENCE [None]
